FAERS Safety Report 25279827 (Version 4)
Quarter: 2025Q2

REPORT INFORMATION
  Report Type: Spontaneous
  Country: AT (occurrence: AT)
  Receive Date: 20250507
  Receipt Date: 20250624
  Transmission Date: 20250717
  Serious: Yes (Other)
  Sender: BRISTOL-MYERS SQUIBB COMPANY
  Company Number: AT-IPSEN Group, Research and Development-2025-09880

PATIENT
  Age: 71 Year

DRUGS (4)
  1. NIVOLUMAB [Suspect]
     Active Substance: NIVOLUMAB
     Indication: Clear cell renal cell carcinoma
     Dates: start: 202301
  2. CABOMETYX [Suspect]
     Active Substance: CABOZANTINIB S-MALATE
     Indication: Clear cell renal cell carcinoma
     Dates: start: 202301
  3. PANTOPRAZOLE SODIUM [Concomitant]
     Active Substance: PANTOPRAZOLE SODIUM
     Indication: Product used for unknown indication
  4. XARELTO [Concomitant]
     Active Substance: RIVAROXABAN
     Indication: Product used for unknown indication

REACTIONS (5)
  - Cardiac failure [Unknown]
  - Atrial fibrillation [Unknown]
  - Wound [Unknown]
  - Impaired healing [Unknown]
  - Pruritus [Unknown]

NARRATIVE: CASE EVENT DATE: 20230101
